FAERS Safety Report 9036153 (Version 1)
Quarter: 2013Q1

REPORT INFORMATION
  Report Type: Spontaneous
  Country: US (occurrence: None)
  Receive Date: 20130116
  Receipt Date: 20130116
  Transmission Date: 20140127
  Serious: Yes (Other)
  Sender: FDA-Public Use
  Company Number: 2013MA000452

PATIENT
  Age: 27 Year
  Sex: Male

DRUGS (2)
  1. METOCLOPRAMIDE ORAL SOLUTION USP, EQ. 5 MG BASE/5 ML (ALPHARMA) (METOCLOPRAMIDE) [Suspect]
     Indication: NAUSEA
     Dates: start: 20120806, end: 20120808
  2. CIPRALEX [Concomitant]

REACTIONS (5)
  - Panic attack [None]
  - Crying [None]
  - Emotional poverty [None]
  - Akathisia [None]
  - Dry mouth [None]
